FAERS Safety Report 6431598-X (Version None)
Quarter: 2009Q4

REPORT INFORMATION
  Report Type: 
  Country: None (occurrence: None)
  Receive Date: 20091106
  Receipt Date: 20091022
  Transmission Date: 20100525
  Serious: Yes (Hospitalization)
  Sender: FDA-Public Use
  Company Number: SG-MERCK-0910SGP00009

PATIENT

DRUGS (3)
  1. CANCIDAS [Suspect]
     Indication: EVIDENCE BASED TREATMENT
     Route: 042
     Dates: start: 20090101, end: 20090101
  2. CANCIDAS [Suspect]
     Route: 042
     Dates: start: 20090101, end: 20091001
  3. TIGECYCLINE [Concomitant]
     Route: 065
     Dates: start: 20090101

REACTIONS (2)
  - NEUTROPENIA [None]
  - PANCREATITIS [None]
